FAERS Safety Report 23837230 (Version 1)
Quarter: 2024Q2

REPORT INFORMATION
  Report Type: Spontaneous
  Country: PT (occurrence: PT)
  Receive Date: 20240509
  Receipt Date: 20240509
  Transmission Date: 20240715
  Serious: Yes (Hospitalization, Other)
  Sender: FDA-Public Use
  Company Number: PT-SUN PHARMACEUTICAL INDUSTRIES LTD-2024R1-445424

PATIENT
  Age: 43 Year
  Sex: Male

DRUGS (2)
  1. TESTOSTERONE [Suspect]
     Active Substance: TESTOSTERONE
     Indication: Steroid therapy
     Dosage: 1000 MILLIGRAM EVERY 3 MONTHS
     Route: 065
  2. NANDROLONE [Suspect]
     Active Substance: NANDROLONE
     Indication: Steroid therapy
     Dosage: UNK
     Route: 030

REACTIONS (1)
  - Acute coronary syndrome [Unknown]
